FAERS Safety Report 6042201-5 (Version None)
Quarter: 2009Q1

REPORT INFORMATION
  Report Type: 
  Country: None (occurrence: None)
  Receive Date: 20090116
  Receipt Date: 20080702
  Transmission Date: 20090719
  Serious: No
  Sender: FDA-Public Use
  Company Number: US-BAYER-200812958BCC

PATIENT
  Age: 59 Year
  Sex: Male
  Weight: 84 kg

DRUGS (2)
  1. ALEVE [Suspect]
     Indication: PAIN IN EXTREMITY
     Dosage: TOTAL DAILY DOSE: 440 MG  UNIT DOSE: 220 MG
     Route: 048
     Dates: start: 20080701, end: 20080701
  2. ALEVE [Suspect]
     Dosage: TOTAL DAILY DOSE: 440 MG  UNIT DOSE: 220 MG
     Route: 048
     Dates: start: 20080702

REACTIONS (4)
  - DYSPNOEA [None]
  - ERYTHEMA [None]
  - HEADACHE [None]
  - HYPERTENSION [None]
